FAERS Safety Report 7100190-6 (Version None)
Quarter: 2010Q4

REPORT INFORMATION
  Report Type: 
  Country: None (occurrence: None)
  Receive Date: 20101112
  Receipt Date: 20101109
  Transmission Date: 20110411
  Serious: Yes (Death, Life-Threatening, Other)
  Sender: FDA-Public Use
  Company Number: JP-PFIZER INC-2010032780

PATIENT
  Age: 5 Day
  Sex: Male
  Weight: 26 kg

DRUGS (7)
  1. SILDENAFIL CITRATE [Suspect]
     Indication: PULMONARY HYPERTENSION
     Dosage: 0.4 MG, EVERY 4 HRS
     Route: 045
     Dates: start: 20100305
  2. FLOLAN [Suspect]
     Route: 042
  3. MILRILA [Suspect]
     Indication: CARDIAC FAILURE
     Dosage: 1 MG, DAY
     Route: 042
     Dates: start: 20100301, end: 20100311
  4. MILRILA [Suspect]
     Indication: PULMONARY HYPERTENSION
  5. DOPAMINE HCL [Suspect]
     Indication: CARDIAC FAILURE
     Dosage: 11 MG, DAY
     Route: 042
     Dates: start: 20100301, end: 20100312
  6. DOBUTREX [Suspect]
     Indication: CARDIAC FAILURE
     Dosage: 11 MG, DAY
     Route: 042
     Dates: start: 20100301, end: 20100311
  7. NITRIC OXIDE [Concomitant]

REACTIONS (6)
  - ATRIAL TACHYCARDIA [None]
  - BLOOD PRESSURE DECREASED [None]
  - DRUG INEFFECTIVE [None]
  - HYPOXIA [None]
  - OXYGEN SATURATION INCREASED [None]
  - PNEUMOTHORAX [None]
